FAERS Safety Report 16744571 (Version 1)
Quarter: 2019Q3

REPORT INFORMATION
  Report Type: Spontaneous
  Country: US (occurrence: US)
  Receive Date: 20190709
  Receipt Date: 20190709
  Transmission Date: 20191005
  Serious: No
  Sender: FDA-Public Use
  Company Number: None

PATIENT
  Age: 60 Year
  Sex: Female

DRUGS (4)
  1. TASIGNA [Suspect]
     Active Substance: NILOTINIB
     Indication: CHRONIC MYELOID LEUKAEMIA
     Route: 048
     Dates: start: 20181026
  2. ONDANSETRON [Concomitant]
     Active Substance: ONDANSETRON
  3. CLOBETASOL [Concomitant]
     Active Substance: CLOBETASOL
  4. XANAX [Concomitant]
     Active Substance: ALPRAZOLAM

REACTIONS (4)
  - Hyperaesthesia [None]
  - Alopecia [None]
  - Muscle spasms [None]
  - Erythema [None]

NARRATIVE: CASE EVENT DATE: 20190619
